FAERS Safety Report 6831860-2 (Version None)
Quarter: 2010Q3

REPORT INFORMATION
  Report Type: 
  Country: None (occurrence: None)
  Receive Date: 20100712
  Receipt Date: 20100702
  Transmission Date: 20110219
  Serious: Yes (Hospitalization)
  Sender: FDA-Public Use
  Company Number: FR-PFIZER INC-2010083507

PATIENT
  Age: 81 Year
  Sex: Male

DRUGS (13)
  1. TAHOR [Suspect]
     Dosage: 40 MG, 2X/DAY
     Route: 048
     Dates: end: 20090825
  2. TRIMEBUTINE [Suspect]
     Dosage: 1 DF, 2X/DAY
     Route: 048
     Dates: end: 20090825
  3. NOCERTONE [Suspect]
     Dosage: 60 MG, 3X/DAY
     Route: 048
     Dates: end: 20090825
  4. SEGLOR [Suspect]
     Dosage: 1 DF, 2X/DAY
     Route: 048
     Dates: end: 20090825
  5. BISOPROLOL [Suspect]
     Dosage: 1 DF, 2X/DAY
     Route: 048
     Dates: end: 20090825
  6. BI-PROFENID [Suspect]
     Dosage: 150 MG, 2X/DAY
     Route: 048
     Dates: end: 20090825
  7. SKENAN [Suspect]
     Dosage: 30 MG, 2X/DAY
     Route: 048
  8. GLYBURIDE [Suspect]
     Dosage: 5 MG, 2X/DAY
     Route: 048
     Dates: end: 20090829
  9. SINTROM [Concomitant]
     Dosage: 1 DF, DOSE UNCHANGED
  10. COVERSYL [Concomitant]
     Dosage: 1 DF, DOSE UNCHANGED
  11. ZOLPIDEM [Concomitant]
     Dosage: 1 DF, DOSE UNCHANGED
  12. PARACETAMOL [Concomitant]
     Dosage: 1000 UNK, 3X/DAY, DOSE UNCHANGED
  13. CALCIPRAT [Concomitant]
     Dosage: 500, 1 DF, 2X/DAY, DOSE UNCHANGED

REACTIONS (1)
  - FALL [None]
